FAERS Safety Report 12985863 (Version 2)
Quarter: 2017Q1

REPORT INFORMATION
  Report Type: Spontaneous
  Country: US (occurrence: US)
  Receive Date: 20161130
  Receipt Date: 20170207
  Transmission Date: 20170428
  Serious: No
  Sender: FDA-Public Use
  Company Number: US-009507513-1611USA008784

PATIENT

DRUGS (1)
  1. PEGINTRON [Suspect]
     Active Substance: PEGINTERFERON ALFA-2B
     Indication: OTITIS MEDIA
     Dosage: 50 MICROGRAM, QW
     Route: 058

REACTIONS (3)
  - Myalgia [Unknown]
  - Influenza like illness [Unknown]
  - Off label use [Unknown]
